FAERS Safety Report 6567075-5 (Version None)
Quarter: 2010Q1

REPORT INFORMATION
  Report Type: 
  Country: None (occurrence: None)
  Receive Date: 20100128
  Receipt Date: 20100113
  Transmission Date: 20100710
  Serious: Yes (Other)
  Sender: FDA-Public Use
  Company Number: 2010AP000095

PATIENT
  Age: 37 Year
  Sex: Female

DRUGS (6)
  1. CYCLOSPORINE [Suspect]
  2. ACYCLOVIR [Suspect]
     Indication: HERPES SIMPLEX
     Dosage: 10 MG/KG;Q8H;IV
     Route: 042
  3. ACYCLOVIR [Suspect]
     Dosage: 30 MG/KG;QD;IVDRP
     Route: 041
  4. PREDNISONE [Suspect]
     Indication: GRAFT VERSUS HOST DISEASE
     Dosage: 0.5 MG/KG;QD
  5. FOSCARNET [Suspect]
     Indication: HERPES SIMPLEX
     Dosage: 40 MG/KG;QD;IV ; 25 MG/KG;Q12H;IV
     Route: 042
  6. CIDOFOVIR [Concomitant]

REACTIONS (7)
  - DRUG INEFFECTIVE [None]
  - DRUG RESISTANCE [None]
  - DRUG TOXICITY [None]
  - HYPONATRAEMIA [None]
  - NEUTROPENIA [None]
  - PATHOGEN RESISTANCE [None]
  - RENAL FAILURE [None]
